FAERS Safety Report 15556749 (Version 2)
Quarter: 2018Q4

REPORT INFORMATION
  Report Type: Spontaneous
  Country: BE (occurrence: BE)
  Receive Date: 20181026
  Receipt Date: 20181103
  Transmission Date: 20190205
  Serious: Yes (Death, Other)
  Sender: FDA-Public Use
  Company Number: BE-TEVA-2018-BE-968947

PATIENT
  Age: 84 Year
  Sex: Male

DRUGS (8)
  1. OMEPRAZOLE 20 MG [Concomitant]
     Active Substance: OMEPRAZOLE
  2. OLANZAPINE 5 MG [Suspect]
     Active Substance: OLANZAPINE
     Indication: SEXUAL INHIBITION
     Dosage: 2/11/2015: 1/2 TABLET PRESCRIBED. 4, 5 AND 6/11/2015 A WHOLE TABLET. 7 AND 8/11/2015 HALF A TABLET A
     Dates: start: 20151102, end: 20151108
  3. KEPPRA [Concomitant]
     Active Substance: LEVETIRACETAM
  4. EMCONCOR MINOR 2,5 MG [Concomitant]
  5. ASAFLOW 80 MG [Concomitant]
  6. CLEXANE 40 MG [Concomitant]
  7. COVERSYL 5 MG [Concomitant]
     Active Substance: PERINDOPRIL
  8. SIMVASTATINE 40 MG TEVA, FILMOMHULDE TABLETTEN [Concomitant]
     Active Substance: SIMVASTATIN

REACTIONS (5)
  - Somnolence [Recovered/Resolved]
  - Drooling [Recovered/Resolved]
  - Somnolence [Recovered/Resolved]
  - Cerebrovascular accident [Fatal]
  - Hemiparesis [Recovered/Resolved]

NARRATIVE: CASE EVENT DATE: 20151105
